FAERS Safety Report 4947927-X (Version None)
Quarter: 2006Q1

REPORT INFORMATION
  Report Type: 
  Country: None (occurrence: None)
  Receive Date: 20060317
  Receipt Date: 20060317
  Transmission Date: 20060701
  Serious: Yes (Other)
  Sender: FDA-Public Use
  Company Number: None

PATIENT
  Age: 43 Month
  Sex: Female
  Weight: 15 kg

DRUGS (1)
  1. AMOXICILLIN + CLAVULANATE POTASSIUM [Suspect]
     Indication: OTITIS MEDIA
     Dosage: 600 MG BID ORAL
     Route: 048
     Dates: start: 20060306, end: 20060311

REACTIONS (5)
  - ABNORMAL BEHAVIOUR [None]
  - ANGER [None]
  - CRYING [None]
  - INSOMNIA [None]
  - PSYCHOMOTOR HYPERACTIVITY [None]
